FAERS Safety Report 24362276 (Version 1)
Quarter: 2024Q3

REPORT INFORMATION
  Report Type: Spontaneous
  Country: US (occurrence: None)
  Receive Date: 20240925
  Receipt Date: 20240925
  Transmission Date: 20241017
  Serious: Yes (Hospitalization)
  Sender: Public
  Company Number: None

PATIENT
  Age: 64 Year
  Sex: Male
  Weight: 99.1 kg

DRUGS (1)
  1. BREYANZI [Suspect]
     Active Substance: LISOCABTAGENE MARALEUCEL

REACTIONS (17)
  - Cytokine release syndrome [None]
  - Infusion related reaction [None]
  - Hypotension [None]
  - Fatigue [None]
  - Nausea [None]
  - Malaise [None]
  - Myalgia [None]
  - Serum ferritin increased [None]
  - Neurotoxicity [None]
  - Somnolence [None]
  - Depressed level of consciousness [None]
  - Dysphagia [None]
  - Restlessness [None]
  - Agitation [None]
  - Cerebrovascular accident [None]
  - Seizure [None]
  - Memory impairment [None]

NARRATIVE: CASE EVENT DATE: 20240819
